FAERS Safety Report 10200952 (Version 1)
Quarter: 2014Q2

REPORT INFORMATION
  Report Type: Spontaneous
  Country: FR (occurrence: FR)
  Receive Date: 20140528
  Receipt Date: 20140528
  Transmission Date: 20141212
  Serious: Yes (Other)
  Sender: FDA-Public Use
  Company Number: FR-AMGEN-FRASP2014037766

PATIENT
  Age: 71 Year
  Sex: Female
  Weight: 65 kg

DRUGS (1)
  1. ARANESP [Suspect]
     Indication: PRODUCT USED FOR UNKNOWN INDICATION
     Dosage: 60 MUG, EVERY 15 DAYS
     Route: 065

REACTIONS (5)
  - Parkinson^s disease [Unknown]
  - Erythrosis [Unknown]
  - Hot flush [Unknown]
  - Dizziness [Unknown]
  - Fall [Unknown]
